FAERS Safety Report 7486576-9 (Version None)
Quarter: 2011Q2

REPORT INFORMATION
  Report Type: 
  Country: None (occurrence: None)
  Receive Date: 20110516
  Receipt Date: 20110516
  Transmission Date: 20111010
  Serious: Yes (Other)
  Sender: FDA-Public Use
  Company Number: None

PATIENT
  Age: 32 Year
  Sex: Female
  Weight: 68.0396 kg

DRUGS (1)
  1. BUPROPION HCL [Suspect]

REACTIONS (4)
  - ODYNOPHAGIA [None]
  - HYPERSENSITIVITY [None]
  - ANGIOEDEMA [None]
  - DYSPHONIA [None]
